FAERS Safety Report 13770523 (Version 1)
Quarter: 2017Q3

REPORT INFORMATION
  Report Type: Spontaneous
  Country: US (occurrence: US)
  Receive Date: 20170719
  Receipt Date: 20170719
  Transmission Date: 20171127
  Serious: Yes (Death, Hospitalization)
  Sender: FDA-Public Use
  Company Number: US-BEH-2017082108

PATIENT
  Age: 73 Year
  Sex: Male
  Weight: 100.68 kg

DRUGS (23)
  1. COREG [Concomitant]
     Active Substance: CARVEDILOL
  2. DOXYCYCLINE. [Concomitant]
     Active Substance: DOXYCYCLINE
  3. BUMETANIDE. [Concomitant]
     Active Substance: BUMETANIDE
  4. MEXILETINE [Concomitant]
     Active Substance: MEXILETINE
  5. ACETAMINOPHEN. [Concomitant]
     Active Substance: ACETAMINOPHEN
  6. EPINEPHRINE. [Concomitant]
     Active Substance: EPINEPHRINE
  7. TAMSULOSIN [Concomitant]
     Active Substance: TAMSULOSIN
  8. UMECLIDINIUM BROMIDE [Concomitant]
     Active Substance: UMECLIDINIUM BROMIDE
  9. RESTORIL [Concomitant]
     Active Substance: TEMAZEPAM
  10. HIZENTRA [Suspect]
     Active Substance: HUMAN IMMUNOGLOBULIN G
     Dosage: UNK
     Route: 058
  11. ADVAIR HFA [Concomitant]
     Active Substance: FLUTICASONE PROPIONATE\SALMETEROL XINAFOATE
  12. LIPITOR [Concomitant]
     Active Substance: ATORVASTATIN CALCIUM
  13. HIZENTRA [Suspect]
     Active Substance: HUMAN IMMUNOGLOBULIN G
     Indication: IMMUNODEFICIENCY COMMON VARIABLE
     Dosage: 30 G, Q3W
     Route: 058
     Dates: start: 20170313
  14. FENOFIBRATE. [Concomitant]
     Active Substance: FENOFIBRATE
  15. LOSARTAN. [Concomitant]
     Active Substance: LOSARTAN
  16. PROAIR HFA [Concomitant]
     Active Substance: ALBUTEROL SULFATE
  17. ZANTAC [Concomitant]
     Active Substance: RANITIDINE HYDROCHLORIDE
  18. DIPHENHYDRAMINE. [Concomitant]
     Active Substance: DIPHENHYDRAMINE
  19. LMX                                /00033401/ [Concomitant]
  20. WARFARIN [Concomitant]
     Active Substance: WARFARIN
  21. IPRATROPIUM BROMIDE AND ALBUTEROL SULFATE [Concomitant]
     Active Substance: ALBUTEROL SULFATE\IPRATROPIUM BROMIDE
  22. FINASTERIDE. [Concomitant]
     Active Substance: FINASTERIDE
  23. MULTIVITAMINS [Concomitant]
     Active Substance: VITAMINS

REACTIONS (2)
  - Myocardial infarction [Unknown]
  - Death [Fatal]

NARRATIVE: CASE EVENT DATE: 201707
